FAERS Safety Report 8203064-2 (Version None)
Quarter: 2012Q1

REPORT INFORMATION
  Report Type: 
  Country: None (occurrence: None)
  Receive Date: 20120312
  Receipt Date: 20120302
  Transmission Date: 20120608
  Serious: Yes (Other)
  Sender: FDA-Public Use
  Company Number: CN-ASTRAZENECA-2012SE14879

PATIENT
  Sex: Female

DRUGS (7)
  1. PHENOBARBITAL SODIUM 100MG CAP [Suspect]
     Dosage: 0.1 GR
     Route: 030
  2. DEXAMETHASONE [Suspect]
     Dosage: 10 MG
     Route: 042
  3. OXYGEN [Suspect]
     Dosage: 6 L/MIN
     Route: 055
  4. PROPOFOL [Suspect]
     Indication: ANAESTHESIA PROCEDURE
     Route: 042
  5. ONDANSETRON [Suspect]
     Dosage: 8 MG
     Route: 042
  6. ATROPINE [Suspect]
     Dosage: 0.5 MG
     Route: 030
  7. FENTANYL [Suspect]
     Indication: ANAESTHESIA PROCEDURE
     Route: 042

REACTIONS (1)
  - RESPIRATORY ARREST [None]
